FAERS Safety Report 6655976-9 (Version None)
Quarter: 2010Q1

REPORT INFORMATION
  Report Type: 
  Country: None (occurrence: None)
  Receive Date: 20100329
  Receipt Date: 20100324
  Transmission Date: 20100710
  Serious: Yes (Other)
  Sender: FDA-Public Use
  Company Number: PHHY2009BR59242

PATIENT
  Age: 49 Year
  Sex: Male
  Weight: 65 kg

DRUGS (3)
  1. MYFORTIC [Suspect]
     Indication: PANCREAS TRANSPLANT
     Dosage: 360 MG, Q8H
     Route: 048
  2. PROGRAF [Concomitant]
     Indication: PANCREAS TRANSPLANT
     Dosage: 1 MG, 3 CAPSULES IN THE MORNING AND 2 CAPSULES AT NIGHT
     Route: 048
  3. PREDNISONE [Concomitant]
     Indication: PANCREAS TRANSPLANT
     Dosage: 5 MG, ONE TABLET IN THE MORNING
     Route: 048

REACTIONS (4)
  - BRONCHOSPASM [None]
  - CHEST DISCOMFORT [None]
  - DYSPNOEA [None]
  - INFLUENZA [None]
